FAERS Safety Report 4298033-1 (Version None)
Quarter: 2004Q1

REPORT INFORMATION
  Report Type: 
  Country: None (occurrence: None)
  Receive Date: 20040218
  Receipt Date: 20011002
  Transmission Date: 20041129
  Serious: Yes (Other)
  Sender: FDA-Public Use
  Company Number: US-BRISTOL-MYERS SQUIBB COMPANY-11534120

PATIENT
  Age: 50 Year
  Sex: Female

DRUGS (12)
  1. STADOL [Suspect]
     Route: 045
  2. STADOL [Suspect]
  3. ACETAMINOPHEN W/ PROPOXYPHENE HCL [Concomitant]
  4. PROMETHAZINE [Concomitant]
  5. NORTRIPTYLINE HCL [Concomitant]
  6. SERZONE [Concomitant]
  7. ACETAMINOPHEN AND HYDROCODONE BITARTRATE [Concomitant]
  8. PAXIL [Concomitant]
  9. PROCHLORPERAZINE [Concomitant]
  10. ASPIRIN+CAFFEINE+BUTALBITAL [Concomitant]
  11. ACETAMINOPHEN W/ CODEINE [Concomitant]
  12. NEURONTIN [Concomitant]

REACTIONS (1)
  - DEPENDENCE [None]
